FAERS Safety Report 7121467-4 (Version None)
Quarter: 2010Q4

REPORT INFORMATION
  Report Type: 
  Country: None (occurrence: None)
  Receive Date: 20101124
  Receipt Date: 20101118
  Transmission Date: 20110411
  Serious: Yes (Other)
  Sender: FDA-Public Use
  Company Number: CHPA2010US17922

PATIENT
  Sex: Female

DRUGS (1)
  1. EXCEDRIN PM EXPRESS GELS (NCH) [Suspect]
     Indication: INSOMNIA
     Dosage: UNK, UNK
     Route: 048

REACTIONS (7)
  - AMNESIA [None]
  - CEREBROVASCULAR ACCIDENT [None]
  - FACIAL PAIN [None]
  - HYPERSENSITIVITY [None]
  - INTENTIONAL DRUG MISUSE [None]
  - PRURITUS [None]
  - SPEECH DISORDER [None]
